FAERS Safety Report 20951650 (Version 2)
Quarter: 2022Q3

REPORT INFORMATION
  Report Type: Report from Study
  Country: AU (occurrence: AU)
  Receive Date: 20220613
  Receipt Date: 20220706
  Transmission Date: 20221026
  Serious: Yes (Other)
  Sender: FDA-Public Use
  Company Number: AU-JNJFOC-20211237777

PATIENT
  Sex: Female

DRUGS (2)
  1. BORTEZOMIB [Suspect]
     Active Substance: BORTEZOMIB
     Indication: Marginal zone lymphoma
     Dosage: UNK UNK, 1/WEEK
     Route: 065
     Dates: end: 20220606
  2. BORTEZOMIB [Suspect]
     Active Substance: BORTEZOMIB
     Dosage: UNK
     Route: 065
     Dates: end: 20220628

REACTIONS (3)
  - Marginal zone lymphoma [Unknown]
  - Product use in unapproved indication [Unknown]
  - Off label use [Unknown]
